FAERS Safety Report 6162195-1 (Version None)
Quarter: 2009Q2

REPORT INFORMATION
  Report Type: 
  Country: None (occurrence: None)
  Receive Date: 20090417
  Receipt Date: 20090417
  Transmission Date: 20091009
  Serious: Yes (Other)
  Sender: FDA-Public Use
  Company Number: None

PATIENT
  Age: 49 Year
  Sex: Female
  Weight: 68.9467 kg

DRUGS (1)
  1. METOCLOPRAMIDE 10MG TEVA [Suspect]
     Indication: IMPAIRED GASTRIC EMPTYING
     Dosage: 10MG 2 A DAY PO
     Route: 048
     Dates: start: 20090401, end: 20090415

REACTIONS (1)
  - VISION BLURRED [None]
